FAERS Safety Report 17136818 (Version 1)
Quarter: 2019Q4

REPORT INFORMATION
  Report Type: Report from Study
  Country: GB (occurrence: GB)
  Receive Date: 20191210
  Receipt Date: 20191210
  Transmission Date: 20200122
  Serious: Yes (Other)
  Sender: FDA-Public Use
  Company Number: PHHY2015GB042554

PATIENT
  Age: 37 Year
  Sex: Female

DRUGS (1)
  1. GILENYA [Suspect]
     Active Substance: FINGOLIMOD HYDROCHLORIDE
     Indication: MULTIPLE SCLEROSIS
     Dosage: UNK, QD
     Route: 048
     Dates: start: 20131202, end: 201705

REACTIONS (23)
  - White blood cell count decreased [Unknown]
  - Dyspnoea [Unknown]
  - Head discomfort [Unknown]
  - Malaise [Unknown]
  - Alopecia [Unknown]
  - Influenza like illness [Recovered/Resolved]
  - Fatigue [Unknown]
  - Paraesthesia [Unknown]
  - Balance disorder [Unknown]
  - Lymphocyte count decreased [Unknown]
  - Onychoclasis [Unknown]
  - Muscular weakness [Unknown]
  - Hypoaesthesia [Unknown]
  - Feeling abnormal [Recovered/Resolved]
  - Rash [Recovered/Resolved]
  - Rash [Unknown]
  - Dysaesthesia [Unknown]
  - Pain in extremity [Unknown]
  - Weight increased [Unknown]
  - Syncope [Unknown]
  - Urinary tract infection [Unknown]
  - Contusion [Recovered/Resolved]
  - Oral herpes [Unknown]

NARRATIVE: CASE EVENT DATE: 20140103
